FAERS Safety Report 5590626-4 (Version None)
Quarter: 2008Q1

REPORT INFORMATION
  Report Type: 
  Country: None (occurrence: None)
  Receive Date: 20080109
  Receipt Date: 20071228
  Transmission Date: 20080703
  Serious: Yes (Hospitalization)
  Sender: FDA-Public Use
  Company Number: TPA2007A02567

PATIENT
  Age: 65 Year
  Sex: Female
  Weight: 92.5338 kg

DRUGS (5)
  1. ACTOS [Suspect]
     Indication: TYPE 2 DIABETES MELLITUS
     Dosage: 15 MG, 1 IN 1 D, PER ORAL : 30 MG, 1 IN 1 D, PER ORAL
     Route: 048
     Dates: end: 20070601
  2. ACTOS [Suspect]
     Indication: TYPE 2 DIABETES MELLITUS
     Dosage: 15 MG, 1 IN 1 D, PER ORAL : 30 MG, 1 IN 1 D, PER ORAL
     Route: 048
     Dates: start: 20070601
  3. GLUCOPHAGE [Concomitant]
  4. COUMADIN [Concomitant]
  5. ARIMIDEX [Concomitant]

REACTIONS (5)
  - BREAST CANCER FEMALE [None]
  - BREAST MASS [None]
  - GLYCOSYLATED HAEMOGLOBIN INCREASED [None]
  - PULMONARY THROMBOSIS [None]
  - SCAR [None]
